FAERS Safety Report 9813618 (Version 1)
Quarter: 2014Q1

REPORT INFORMATION
  Report Type: Spontaneous
  Country: US (occurrence: None)
  Receive Date: 20140109
  Receipt Date: 20140109
  Transmission Date: 20141002
  Serious: Yes (Hospitalization)
  Sender: FDA-Public Use
  Company Number: None

PATIENT
  Age: 11 Year
  Sex: Male

DRUGS (17)
  1. LEVOFLOXACIN [Suspect]
     Indication: ANTIBIOTIC PROPHYLAXIS
     Dosage: 1 1/2 TABS
     Route: 048
     Dates: start: 20131015, end: 20131031
  2. LEVOFLOXACIN [Suspect]
     Indication: BONE MARROW TRANSPLANT
     Dosage: 1 1/2 TABS
     Route: 048
     Dates: start: 20131015, end: 20131031
  3. HUMALOG [Concomitant]
  4. OXYCODONE [Concomitant]
  5. URSODIOL [Concomitant]
  6. METHADONE [Concomitant]
  7. MG-PLUS-PROTEIN [Concomitant]
  8. FLUCONAZOLE [Concomitant]
  9. ACYCLOVIR [Concomitant]
  10. AMLODIPINE [Concomitant]
  11. FAMOTIDINE [Concomitant]
  12. LANSOPRAZOLE [Concomitant]
  13. GENGRAF [Concomitant]
  14. PREDNISONE [Concomitant]
  15. ONDANSETRON [Concomitant]
  16. HYDROCORTISONE [Concomitant]
  17. NEOMYCIN-POLYMYXIN-DEXAMETH [Concomitant]

REACTIONS (2)
  - Toxic epidermal necrolysis [None]
  - Stevens-Johnson syndrome [None]
